FAERS Safety Report 8538531-5 (Version None)
Quarter: 2012Q3

REPORT INFORMATION
  Report Type: 
  Country: None (occurrence: None)
  Receive Date: 20120726
  Receipt Date: 20120717
  Transmission Date: 20120928
  Serious: Yes (Other)
  Sender: FDA-Public Use
  Company Number: CH-VERTEX PHARMACEUTICALS INC.-000000000000001215

PATIENT
  Age: 62 Year
  Sex: Female

DRUGS (6)
  1. INCIVO [Suspect]
     Indication: HEPATITIS C
     Dosage: DOSAGE FORM: TABLET
     Route: 048
     Dates: start: 20120313, end: 20120601
  2. PEGASYS [Concomitant]
     Indication: HEPATITIS C
     Dosage: DOSAGE FORM: UNSPECIFIED
     Route: 058
     Dates: start: 20120313, end: 20120601
  3. COPEGUS [Concomitant]
     Dosage: DOSAGE FORM: UNSPECIFIED
     Route: 048
     Dates: start: 20120619
  4. COPEGUS [Concomitant]
     Indication: HEPATITIS C
     Dosage: DOSAGE FORM: UNSPECIFIED
     Route: 048
     Dates: start: 20120313, end: 20120601
  5. PEGASYS [Concomitant]
     Dosage: DOSAGE FORM: UNSPECIFIED
     Route: 058
     Dates: start: 20120601
  6. COPEGUS [Concomitant]
     Dosage: DOSAGE FORM: UNSPECIFIED
     Route: 048
     Dates: start: 20120601

REACTIONS (3)
  - HAEMOLYTIC ANAEMIA [None]
  - PANNICULITIS [None]
  - PANCREATITIS [None]
